FAERS Safety Report 22162749 (Version 3)
Quarter: 2023Q2

REPORT INFORMATION
  Report Type: Report from Study
  Country: ES (occurrence: ES)
  Receive Date: 20230331
  Receipt Date: 20230601
  Transmission Date: 20230721
  Serious: Yes (Death, Hospitalization, Other)
  Sender: FDA-Public Use
  Company Number: ES-KYOWAKIRIN-2022BKK020503

PATIENT

DRUGS (12)
  1. POTELIGEO [Suspect]
     Active Substance: MOGAMULIZUMAB-KPKC
     Indication: Cutaneous T-cell lymphoma
     Dosage: 1 MG/KG (DAYS 1, 8, 15 AND 22 OF THE FIRST 28-DAY CYCLE, THEN DAYS 1 AND 15 OF EACH SUBSEQUENT CYCLE
     Route: 042
     Dates: start: 202005, end: 202210
  2. METHYLPREDNISOLONE ACEPONATE [Concomitant]
     Active Substance: METHYLPREDNISOLONE ACEPONATE
     Indication: Cutaneous T-cell lymphoma
     Dosage: 1 MG/G, QD
     Route: 061
     Dates: start: 2012
  3. MOMETASONE [Concomitant]
     Active Substance: MOMETASONE
     Indication: Cutaneous T-cell lymphoma
     Dosage: 1 MG/G
     Route: 061
     Dates: start: 2012
  4. CLOBETASOL [Concomitant]
     Active Substance: CLOBETASOL
     Indication: Cutaneous T-cell lymphoma
     Dosage: 0.5 MG/G
     Route: 061
     Dates: start: 2012
  5. IMIQUIMOD [Concomitant]
     Active Substance: IMIQUIMOD
     Indication: Cutaneous T-cell lymphoma
     Dosage: 50 MG/G, ONCE DAILY FOR 3 WEEKS
     Route: 061
     Dates: start: 2012
  6. METHOTREXATE [Concomitant]
     Active Substance: METHOTREXATE
     Indication: Cutaneous T-cell lymphoma
     Dosage: 10 -15 MG/WEEK
     Route: 065
     Dates: start: 2014
  7. BEXAROTENE [Concomitant]
     Active Substance: BEXAROTENE
     Indication: Cutaneous T-cell lymphoma
     Dosage: 150-300 MG/M2, ONCE DAILY
     Route: 065
     Dates: start: 2016, end: 2018
  8. GEMCITABINE [Concomitant]
     Active Substance: GEMCITABINE
     Indication: Cutaneous T-cell lymphoma
     Dosage: 1200 MG/M2 (DAY 1, 8 AND 15 OF EACH 28-DAY CYCLE (5 CYCLES)
     Route: 065
     Dates: start: 201903, end: 201907
  9. CYCLOPHOSPHAMIDE\DOXORUBICIN\PREDNISONE\VINCRISTINE [Concomitant]
     Active Substance: CYCLOPHOSPHAMIDE\DOXORUBICIN\PREDNISONE\VINCRISTINE
     Indication: Cutaneous T-cell lymphoma
     Dosage: UNK (CHEMOTHERAPY)
     Route: 065
     Dates: start: 201912, end: 202003
  10. ETOPOSIDE [Concomitant]
     Active Substance: ETOPOSIDE
     Indication: Cutaneous T-cell lymphoma
     Dosage: 50 MG/DAY (ONCE DAILY, 3 WEEKS ON, 1 WEEK OFF) (FIRST COURSE)
     Route: 065
     Dates: start: 202108, end: 202201
  11. ETOPOSIDE [Concomitant]
     Active Substance: ETOPOSIDE
     Dosage: 50 MG/DAY (ONCE DAILY, 3 WEEKS ON, 1 WEEK OFF) (SECOND COURSE)
     Route: 065
     Dates: start: 202207, end: 202210
  12. PREDNISONE [Concomitant]
     Active Substance: PREDNISONE
     Indication: Cutaneous T-cell lymphoma
     Dosage: 5?60 MG/DAY
     Route: 065
     Dates: start: 202108

REACTIONS (7)
  - Septic shock [Fatal]
  - Lymphoma transformation [Not Recovered/Not Resolved]
  - Neutropenia [Recovered/Resolved]
  - Pulmonary embolism [Unknown]
  - Disease progression [Recovered/Resolved]
  - COVID-19 [Unknown]
  - Disease progression [Not Recovered/Not Resolved]

NARRATIVE: CASE EVENT DATE: 20201201
